FAERS Safety Report 10245147 (Version 5)
Quarter: 2015Q1

REPORT INFORMATION
  Report Type: Spontaneous
  Country: US (occurrence: US)
  Receive Date: 20140618
  Receipt Date: 20150223
  Transmission Date: 20150720
  Serious: Yes (Disabling, Other)
  Sender: FDA-Public Use
  Company Number: US-009507513-1406USA007291

PATIENT
  Sex: Male
  Weight: 115.65 kg

DRUGS (4)
  1. PROPECIA [Suspect]
     Active Substance: FINASTERIDE
     Indication: ALOPECIA
     Dosage: 1 MG, UNK
     Route: 048
     Dates: start: 1998, end: 200907
  2. FINASTERIDE. [Suspect]
     Active Substance: FINASTERIDE
     Indication: ALOPECIA
     Dosage: 1.25 MG, QD (1/4 OF 5MG TAB)
     Route: 048
     Dates: start: 200911, end: 2011
  3. FINASTERIDE. [Suspect]
     Active Substance: FINASTERIDE
     Indication: ALOPECIA
     Dosage: 1.25 MG, QD (1/4 OF 5 MG TABLET)
     Route: 048
     Dates: start: 20111125, end: 20120808
  4. FINASTERIDE. [Suspect]
     Active Substance: FINASTERIDE
     Indication: ALOPECIA
     Dosage: 1.25 MG, QD (1/4 OF 5 MG TABLET)
     Route: 048
     Dates: start: 20110811, end: 201110

REACTIONS (24)
  - Osteoarthritis [Recovering/Resolving]
  - Cyst [Recovering/Resolving]
  - Pain [Unknown]
  - Anxiety [Recovered/Resolved]
  - Osteoarthritis [Unknown]
  - Arthralgia [Unknown]
  - Aspartate aminotransferase increased [Unknown]
  - Libido decreased [Unknown]
  - Depression [Recovered/Resolved]
  - Rotator cuff syndrome [Recovering/Resolving]
  - Bone disorder [Recovering/Resolving]
  - Erectile dysfunction [Not Recovered/Not Resolved]
  - Ejaculation failure [Unknown]
  - Hypertension [Unknown]
  - Back pain [Not Recovered/Not Resolved]
  - Carpal tunnel syndrome [Unknown]
  - Reproductive tract disorder [Unknown]
  - Ejaculation disorder [Unknown]
  - Epididymitis [Recovered/Resolved]
  - Cognitive disorder [Unknown]
  - Insomnia [Not Recovered/Not Resolved]
  - Sexual dysfunction [Unknown]
  - Infection [Unknown]
  - Hypersensitivity [Unknown]

NARRATIVE: CASE EVENT DATE: 200003
